FAERS Safety Report 11746606 (Version 1)
Quarter: 2015Q4

REPORT INFORMATION
  Report Type: Spontaneous
  Country: RS (occurrence: RS)
  Receive Date: 20151117
  Receipt Date: 20151117
  Transmission Date: 20160304
  Serious: Yes (Hospitalization)
  Sender: FDA-Public Use
  Company Number: RS-B. BRAUN MEDICAL INC.-1044278

PATIENT
  Age: 59 Year
  Sex: Male
  Weight: 80 kg

DRUGS (8)
  1. METRONIDAZOLE. [Suspect]
     Active Substance: METRONIDAZOLE
     Route: 042
     Dates: start: 20151017, end: 20151017
  2. METOCLOPRAMIDE. [Concomitant]
     Active Substance: METOCLOPRAMIDE
     Route: 042
  3. ADRENALINE [Concomitant]
     Active Substance: EPINEPHRINE
     Dates: start: 20151017, end: 20151017
  4. METAMIZOLE SODIUM [Concomitant]
     Active Substance: METAMIZOLE SODIUM
  5. SODIUM CHLORIDE. [Concomitant]
     Active Substance: SODIUM CHLORIDE
  6. LEMOD SOLUTION [Concomitant]
     Dates: start: 20151017, end: 20151017
  7. CEFTRIAXONE. [Concomitant]
     Active Substance: CEFTRIAXONE
  8. SYNOPEN [Concomitant]
     Dates: start: 20151017, end: 20151017

REACTIONS (8)
  - Tachypnoea [None]
  - Anaphylactic shock [None]
  - Chills [None]
  - Dyspnoea [None]
  - Pyrexia [None]
  - Hypotension [None]
  - Urticaria [None]
  - Cyanosis [None]
